FAERS Safety Report 5274370-9 (Version None)
Quarter: 2007Q1

REPORT INFORMATION
  Report Type: 
  Country: None (occurrence: None)
  Receive Date: 20070323
  Receipt Date: 20070312
  Transmission Date: 20070707
  Serious: Yes (Other)
  Sender: FDA-Public Use
  Company Number: US-PFIZER INC-2006133682

PATIENT
  Sex: Male
  Weight: 80.7 kg

DRUGS (10)
  1. CELEBREX [Suspect]
     Dates: start: 20010101, end: 20021201
  2. BEXTRA [Suspect]
  3. VIOXX [Suspect]
  4. COREG [Concomitant]
  5. WELLBUTRIN [Concomitant]
  6. PLAVIX [Concomitant]
  7. ALTACE [Concomitant]
  8. INSULIN [Concomitant]
  9. ACTOS [Concomitant]
  10. ACETYLSALICYLIC ACID SRT [Concomitant]

REACTIONS (2)
  - CARDIOVASCULAR DISORDER [None]
  - MYOCARDIAL INFARCTION [None]
